FAERS Safety Report 17030601 (Version 1)
Quarter: 2019Q4

REPORT INFORMATION
  Report Type: Spontaneous
  Country: US (occurrence: US)
  Receive Date: 20191114
  Receipt Date: 20191114
  Transmission Date: 20200122
  Serious: No
  Sender: FDA-Public Use
  Company Number: US-ALLERGAN-1852218US

PATIENT
  Sex: Female
  Weight: 81.63 kg

DRUGS (4)
  1. RESTASIS [Concomitant]
     Active Substance: CYCLOSPORINE
     Route: 047
  2. LUMIGAN [Concomitant]
     Active Substance: BIMATOPROST
     Route: 047
  3. KETOROLAC [Concomitant]
     Active Substance: KETOROLAC TROMETHAMINE
     Indication: PAIN
     Route: 048
  4. COMBIGAN [Suspect]
     Active Substance: BRIMONIDINE TARTRATE\TIMOLOL MALEATE
     Indication: INTRAOCULAR PRESSURE INCREASED
     Dosage: 1 GTT, BID
     Route: 047

REACTIONS (5)
  - Eye irritation [Unknown]
  - Asthenopia [Unknown]
  - Nausea [Unknown]
  - Retinopathy [Not Recovered/Not Resolved]
  - Hypoacusis [Unknown]
